FAERS Safety Report 20620027 (Version 1)
Quarter: 2022Q1

REPORT INFORMATION
  Report Type: Other
  Country: CA (occurrence: None)
  Receive Date: 20220322
  Receipt Date: 20220322
  Transmission Date: 20220423
  Serious: Yes (Other)
  Sender: FDA-Public Use
  Company Number: CA-ROCHE-2913067

PATIENT
  Sex: Female

DRUGS (9)
  1. RITUXAN [Suspect]
     Active Substance: RITUXIMAB
     Indication: Mixed connective tissue disease
     Dosage: MORE DOSAGE INFO IS DAY 1, DAY 15.?LAST RITUXAN INFUSION WAS ON 22/MAR/2021
     Route: 042
     Dates: start: 20150318, end: 20180920
  2. RITUXAN [Suspect]
     Active Substance: RITUXIMAB
     Dosage: MORE DOSAGE INFO IS DAY 1, DAY 15
     Route: 042
     Dates: start: 20190329
  3. BENADRYL [Concomitant]
     Active Substance: DIPHENHYDRAMINE HYDROCHLORIDE
     Indication: Premedication
     Route: 048
     Dates: start: 20190329
  4. LANSOPRAZOLE [Concomitant]
     Active Substance: LANSOPRAZOLE
  5. PREDNISONE [Concomitant]
     Active Substance: PREDNISONE
  6. SOLU-MEDROL [Concomitant]
     Active Substance: METHYLPREDNISOLONE SODIUM SUCCINATE
     Indication: Premedication
     Route: 042
     Dates: start: 20191113
  7. TYLENOL [Concomitant]
     Active Substance: ACETAMINOPHEN
     Indication: Premedication
     Route: 048
     Dates: start: 20190329
  8. RISEDRONATE SODIUM [Concomitant]
     Active Substance: RISEDRONATE SODIUM
     Indication: Product used for unknown indication
  9. VENTOLIN [Concomitant]
     Active Substance: ALBUTEROL SULFATE
     Indication: Interstitial lung disease

REACTIONS (5)
  - Dyspnoea [Unknown]
  - Headache [Unknown]
  - Skin infection [Recovered/Resolved]
  - Interstitial lung disease [Unknown]
  - Weight increased [Unknown]
